FAERS Safety Report 15464599 (Version 2)
Quarter: 2018Q4

REPORT INFORMATION
  Report Type: Spontaneous
  Country: US (occurrence: US)
  Receive Date: 20181004
  Receipt Date: 20181004
  Transmission Date: 20190204
  Serious: Yes (Other)
  Sender: FDA-Public Use
  Company Number: US-MELINTA-US-MDCO-18-00028

PATIENT
  Age: 44 Year
  Sex: Female

DRUGS (2)
  1. ORBACTIV [Suspect]
     Active Substance: ORITAVANCIN
     Indication: EXTRADURAL ABSCESS
     Dosage: NOT PROVIDED
     Route: 041
     Dates: start: 20171214
  2. ORBACTIV [Suspect]
     Active Substance: ORITAVANCIN
     Indication: STAPHYLOCOCCAL INFECTION
     Dosage: NOT PROVIDED
     Route: 041
     Dates: start: 2017

REACTIONS (5)
  - Pain [Unknown]
  - Dizziness [Unknown]
  - Vomiting [Unknown]
  - Anaphylactic reaction [Unknown]
  - Off label use [Unknown]

NARRATIVE: CASE EVENT DATE: 201712
